FAERS Safety Report 9206451 (Version 1)
Quarter: 2013Q2

REPORT INFORMATION
  Report Type: Spontaneous
  Country: FR (occurrence: None)
  Receive Date: 20130401
  Receipt Date: 20130401
  Transmission Date: 20140414
  Serious: Yes (Hospitalization)
  Sender: FDA-Public Use
  Company Number: 1650243

PATIENT
  Age: 73 Year
  Sex: Male

DRUGS (14)
  1. CARBOPLATIN [Suspect]
     Indication: LUNG ADENOCARCINOMA
     Dosage: 420 MG, CYCLICAL, IV (NOT OTHERWISE SPECIFIED)
     Route: 042
     Dates: start: 20121025, end: 20130123
  2. DOCETAXEL [Suspect]
     Indication: PRODUCT USED FOR UNKNOWN INDICATION
     Dosage: 140 MG, CYCLICAL, IV(NOT OTHERWISE SPECIFIED)
     Route: 042
     Dates: start: 20130123
  3. AVLOCARDYL/00030001 [Concomitant]
  4. LEVOTHYROX [Concomitant]
  5. INEXIUM/01479302 [Concomitant]
  6. PREVISCAN/00261401 [Concomitant]
  7. PAROXETINE [Concomitant]
  8. SOLUPRED/00016201 [Concomitant]
  9. METHYLPREDNISOLONE [Concomitant]
  10. GRANISETRON [Concomitant]
  11. TRANXENE [Concomitant]
  12. LARGACTIL [Concomitant]
  13. POLARAMINE [Concomitant]
  14. RANITIDINA EG [Concomitant]

REACTIONS (5)
  - Aplasia [None]
  - Asthenia [None]
  - Decreased appetite [None]
  - Diarrhoea [None]
  - No therapeutic response [None]
